FAERS Safety Report 6635331 (Version 13)
Quarter: 2013Q4

REPORT INFORMATION
  Report Type: Spontaneous
  Country: US (occurrence: US)
  Receive Date: 20080508
  Receipt Date: 20131015
  Transmission Date: 20140711
  Serious: Yes (Other)
  Sender: FDA-Public Use
  Company Number: PHEH2008US04165

PATIENT
  Sex: Female

DRUGS (24)
  1. AREDIA [Suspect]
     Dosage: 90 MG,
     Route: 042
     Dates: end: 200910
  2. AREDIA [Suspect]
     Dosage: 90 MG,
     Dates: start: 200910
  3. ZOMETA [Suspect]
     Dosage: 4 MG,
     Route: 042
  4. TYLENOL [Concomitant]
     Dosage: 650 MG,
  5. RADIATION [Concomitant]
  6. TAMOXIFEN [Concomitant]
     Dates: start: 200212
  7. DEXAMETHASONE [Concomitant]
  8. METFORMIN [Concomitant]
  9. OXYCODONE [Concomitant]
  10. LEVAQUIN [Concomitant]
  11. OXYCONTIN [Concomitant]
  12. RADIATION THERAPY [Concomitant]
  13. ZITHROMAX ^HEINRICH MACK^ [Concomitant]
  14. FOSAMAX [Concomitant]
  15. KEFLEX [Concomitant]
  16. XELODA [Concomitant]
  17. HERCEPTIN [Concomitant]
  18. AROMASIN [Concomitant]
     Dates: start: 200902, end: 200906
  19. FASLODEX [Concomitant]
     Dates: start: 200810, end: 200902
  20. ARIMIDEX [Concomitant]
     Dates: start: 200411, end: 200809
  21. ULTRACET [Concomitant]
     Indication: PAIN
  22. PROMETHAZINE [Concomitant]
     Indication: NAUSEA
  23. MOTRIN [Concomitant]
     Indication: PYREXIA
  24. NEURONTIN [Concomitant]
     Dosage: 400 MG, QD

REACTIONS (77)
  - Staphylococcal skin infection [Unknown]
  - Skin lesion [Unknown]
  - Metastases to spine [Unknown]
  - Osteonecrosis of jaw [Unknown]
  - Bone lesion [Unknown]
  - Injury [Unknown]
  - Pain [Unknown]
  - Anxiety [Unknown]
  - Anhedonia [Unknown]
  - Disability [Unknown]
  - Haemorrhoids [Unknown]
  - Depression [Unknown]
  - Memory impairment [Unknown]
  - Abdominal hernia [Unknown]
  - Pelvic neoplasm [Unknown]
  - Breast cancer metastatic [Unknown]
  - Hepatic mass [Unknown]
  - Endometriosis [Unknown]
  - Ovarian cyst [Unknown]
  - Fibrosis [Unknown]
  - Cervical polyp [Unknown]
  - Venous insufficiency [Unknown]
  - Dermatitis contact [Unknown]
  - Hypoaesthesia [Unknown]
  - Hyperlipidaemia [Unknown]
  - Erythema [Unknown]
  - Rash [Unknown]
  - Dysarthria [Unknown]
  - Vision blurred [Unknown]
  - Muscular weakness [Unknown]
  - Hypercholesterolaemia [Unknown]
  - Local swelling [Unknown]
  - Tremor [Unknown]
  - Musculoskeletal pain [Unknown]
  - Costochondritis [Unknown]
  - Anger [Unknown]
  - Musculoskeletal chest pain [Unknown]
  - Oesophagitis [Unknown]
  - Headache [Unknown]
  - Migraine [Unknown]
  - Nausea [Unknown]
  - Vomiting [Unknown]
  - Dizziness [Unknown]
  - Feeling abnormal [Unknown]
  - Spinal osteoarthritis [Unknown]
  - Pubis fracture [Unknown]
  - Back pain [Unknown]
  - Intervertebral disc protrusion [Unknown]
  - Intervertebral disc degeneration [Unknown]
  - Vertebral foraminal stenosis [Unknown]
  - Metastases to bone [Unknown]
  - Mobility decreased [Unknown]
  - Activities of daily living impaired [Unknown]
  - Decubitus ulcer [Unknown]
  - Insomnia [Unknown]
  - Gait disturbance [Unknown]
  - Arthralgia [Unknown]
  - Dysuria [Unknown]
  - Weight decreased [Unknown]
  - Hepatic steatosis [Unknown]
  - Burning sensation [Unknown]
  - Neck pain [Unknown]
  - Blood potassium decreased [Unknown]
  - Globulins increased [Unknown]
  - Neuropathy peripheral [Unknown]
  - Kyphosis [Unknown]
  - Post procedural swelling [Unknown]
  - Toothache [Unknown]
  - Dental caries [Unknown]
  - Fall [Unknown]
  - Scoliosis [Unknown]
  - Osteolysis [Unknown]
  - Spinal cord compression [Unknown]
  - Atelectasis [Unknown]
  - Pathological fracture [Unknown]
  - Hypoxia [Unknown]
  - Pneumonitis [Unknown]
